FAERS Safety Report 9710728 (Version 1)
Quarter: 2013Q4

REPORT INFORMATION
  Report Type: Spontaneous
  Country: US (occurrence: US)
  Receive Date: 20131126
  Receipt Date: 20131126
  Transmission Date: 20140711
  Serious: Yes (Hospitalization)
  Sender: FDA-Public Use
  Company Number: US-BRISTOL-MYERS SQUIBB COMPANY-18953539

PATIENT
  Age: 60 Year
  Sex: Female

DRUGS (8)
  1. BYETTA [Suspect]
     Dosage: FOR 5 YEARS
  2. GLYBURIDE [Concomitant]
  3. METFORMIN [Concomitant]
  4. LISINOPRIL [Concomitant]
  5. SIMVASTATIN [Concomitant]
  6. ALLOPURINOL [Concomitant]
  7. TYLENOL [Concomitant]
     Indication: HEADACHE
  8. MAALOX [Concomitant]
     Indication: NAUSEA

REACTIONS (1)
  - Pancreatitis acute [Unknown]
